FAERS Safety Report 9513399 (Version 1)
Quarter: 2013Q3

REPORT INFORMATION
  Report Type: Spontaneous
  Country: US (occurrence: US)
  Receive Date: 20130910
  Receipt Date: 20130910
  Transmission Date: 20140515
  Serious: No
  Sender: FDA-Public Use
  Company Number: US-TARO-2012P1051828

PATIENT
  Age: 76 Year
  Sex: Female
  Weight: 64.86 kg

DRUGS (7)
  1. WARFARIN SODIUM TABLETS USP 2.5MG [Suspect]
     Route: 048
     Dates: start: 20120320
  2. ARMOUR THYROID [Concomitant]
  3. ACIPHEX [Concomitant]
  4. METOPROLOL [Concomitant]
  5. ASPIRIN [Concomitant]
  6. FUROSEMIDE [Concomitant]
  7. POTASSIUM [Concomitant]

REACTIONS (3)
  - Abdominal pain upper [Not Recovered/Not Resolved]
  - Diarrhoea [Not Recovered/Not Resolved]
  - Anticoagulation drug level above therapeutic [Unknown]
